FAERS Safety Report 6841769-6 (Version None)
Quarter: 2010Q3

REPORT INFORMATION
  Report Type: 
  Country: None (occurrence: None)
  Receive Date: 20100714
  Receipt Date: 20070713
  Transmission Date: 20110219
  Serious: No
  Sender: FDA-Public Use
  Company Number: US-PFIZER INC-2007060124

PATIENT
  Sex: Female
  Weight: 88 kg

DRUGS (4)
  1. CHANTIX [Suspect]
     Indication: SMOKING CESSATION THERAPY
     Dates: start: 20070709
  2. METHYLPHENIDATE [Concomitant]
     Indication: ATTENTION DEFICIT/HYPERACTIVITY DISORDER
  3. TOPAMAX [Concomitant]
  4. ZOLPIDEM TARTRATE [Concomitant]

REACTIONS (1)
  - MOOD SWINGS [None]
